FAERS Safety Report 8991173 (Version 1)
Quarter: 2012Q4

REPORT INFORMATION
  Report Type: Spontaneous
  Country: US (occurrence: None)
  Receive Date: 20121227
  Receipt Date: 20121227
  Transmission Date: 20130627
  Serious: No
  Sender: FDA-Public Use
  Company Number: None

PATIENT
  Age: 57 Year
  Sex: Male

DRUGS (2)
  1. PEGASYS [Suspect]
     Dosage: 180mcg weekly sq
     Route: 058
     Dates: start: 20121128
  2. RIBAPAK [Suspect]
     Dosage: 600mg am ; 400mg pm BID po
     Route: 048
     Dates: start: 20121128

REACTIONS (1)
  - Rash pruritic [None]
